FAERS Safety Report 8844879 (Version 1)
Quarter: 2012Q4

REPORT INFORMATION
  Report Type: 
  Country: DE (occurrence: DE)
  Receive Date: 20121017
  Receipt Date: 20121017
  Transmission Date: 20130627
  Serious: Yes (Other)
  Sender: FDA-Public Use
  Company Number: DE-BAYER-2012-093301

PATIENT
  Sex: Male

DRUGS (1)
  1. BETAFERON [Suspect]
     Route: 058

REACTIONS (4)
  - Aggression [None]
  - Depression [None]
  - Self injurious behaviour [None]
  - Confusional state [None]
